FAERS Safety Report 7623078-0 (Version None)
Quarter: 2011Q3

REPORT INFORMATION
  Report Type: 
  Country: None (occurrence: None)
  Receive Date: 20110720
  Receipt Date: 20110715
  Transmission Date: 20111222
  Serious: Yes (Hospitalization, Other)
  Sender: FDA-Public Use
  Company Number: US-SANOFI-AVENTIS-2011SA045541

PATIENT
  Age: 84 Year
  Sex: Female

DRUGS (9)
  1. MULTAQ [Suspect]
     Indication: ATRIAL FIBRILLATION
     Route: 048
     Dates: start: 20091201
  2. LOVASTATIN [Concomitant]
  3. MULTAQ [Suspect]
     Dosage: 200 MG IN THE AM AND 400 MG HS
     Route: 048
  4. COUMADIN [Concomitant]
  5. TOPROL-XL [Concomitant]
  6. ATACAND [Concomitant]
  7. DIGOXIN [Concomitant]
     Dosage: TAKNE MONDAY, WEDNESDAY AND FRIDAY
  8. SYNTHROID [Concomitant]
  9. MAGNESIUM OXIDE [Concomitant]

REACTIONS (6)
  - BLOOD POTASSIUM INCREASED [None]
  - ATRIAL FIBRILLATION [None]
  - UNDERDOSE [None]
  - FATIGUE [None]
  - BLOOD PRESSURE DECREASED [None]
  - CORONARY ARTERY OCCLUSION [None]
